FAERS Safety Report 10144839 (Version 1)
Quarter: 2014Q2

REPORT INFORMATION
  Report Type: Spontaneous
  Country: US (occurrence: US)
  Receive Date: 20140430
  Receipt Date: 20140430
  Transmission Date: 20141212
  Serious: Yes (Other)
  Sender: FDA-Public Use
  Company Number: US-SA-2014SA011626

PATIENT
  Age: 80 Year
  Sex: Male
  Weight: 107.95 kg

DRUGS (4)
  1. LOVENOX [Suspect]
     Indication: DEEP VEIN THROMBOSIS
     Route: 051
     Dates: start: 20140116
  2. LOVENOX [Suspect]
     Indication: DEEP VEIN THROMBOSIS
     Route: 051
  3. WARFARIN [Suspect]
     Route: 065
     Dates: start: 20140116
  4. ASPIRIN [Suspect]
     Route: 065

REACTIONS (1)
  - Faeces discoloured [Not Recovered/Not Resolved]
